FAERS Safety Report 13300536 (Version 1)
Quarter: 2017Q1

REPORT INFORMATION
  Report Type: Spontaneous
  Country: US (occurrence: US)
  Receive Date: 20170307
  Receipt Date: 20170307
  Transmission Date: 20170428
  Serious: No
  Sender: FDA-Public Use
  Company Number: US-TEVA-681402USA

PATIENT
  Sex: Female

DRUGS (3)
  1. LYRICA [Suspect]
     Active Substance: PREGABALIN
     Indication: INFLAMMATION
  2. GABAPENTIN. [Suspect]
     Active Substance: GABAPENTIN
     Indication: NEURALGIA
     Dosage: 1-2 THREE TIMES PER DAY AS NEEDED
     Route: 048
     Dates: start: 2015
  3. LYRICA [Suspect]
     Active Substance: PREGABALIN
     Indication: MUSCLE SPASMS
     Dates: start: 2012, end: 2015

REACTIONS (4)
  - Glomerular filtration rate decreased [Unknown]
  - Somnolence [Unknown]
  - Drug effect incomplete [Unknown]
  - Gout [Unknown]

NARRATIVE: CASE EVENT DATE: 2015
